FAERS Safety Report 18755071 (Version 1)
Quarter: 2021Q1

REPORT INFORMATION
  Report Type: Spontaneous
  Country: US (occurrence: US)
  Receive Date: 20210115
  Receipt Date: 20210115
  Transmission Date: 20210419
  Serious: Yes (Hospitalization)
  Sender: FDA-Public Use
  Company Number: None

PATIENT
  Age: 75 Year
  Sex: Female
  Weight: 82.1 kg

DRUGS (3)
  1. DARATUMUMAB (791647) [Suspect]
     Active Substance: DARATUMUMAB
     Dates: end: 20201209
  2. LENALIDOMIDE (CC?5013) [Suspect]
     Active Substance: LENALIDOMIDE
     Dates: end: 20201217
  3. DEXAMETHASONE. [Suspect]
     Active Substance: DEXAMETHASONE
     Dates: end: 20201209

REACTIONS (5)
  - Oxygen saturation decreased [None]
  - Hypoxia [None]
  - Respiratory failure [None]
  - COVID-19 pneumonia [None]
  - Fibrin D dimer increased [None]

NARRATIVE: CASE EVENT DATE: 20201217
